FAERS Safety Report 9626671 (Version 3)
Quarter: 2013Q4

REPORT INFORMATION
  Report Type: Spontaneous
  Country: GB (occurrence: GB)
  Receive Date: 20131016
  Receipt Date: 20131018
  Transmission Date: 20140711
  Serious: Yes (Hospitalization)
  Sender: FDA-Public Use
  Company Number: GB-PFIZER INC-2013152165

PATIENT
  Age: 86 Year
  Sex: Male

DRUGS (5)
  1. ATENOLOL [Suspect]
     Dosage: 50 MG, DAILY
     Route: 065
  2. DIGOXIN [Suspect]
     Dosage: 125 UG, DAILY
     Route: 065
  3. LISINOPRIL [Concomitant]
     Dosage: 20 MG, DAILY
     Route: 065
  4. SENNA ALEXANDRINA [Concomitant]
     Dosage: UNK
     Route: 065
  5. WARFARIN [Concomitant]
     Dosage: UNK
     Route: 065

REACTIONS (5)
  - Ascites [Recovering/Resolving]
  - Crepitations [Recovering/Resolving]
  - Bradycardia [Recovering/Resolving]
  - Circulatory collapse [Recovering/Resolving]
  - Lethargy [Recovering/Resolving]
